FAERS Safety Report 8115584-X (Version None)
Quarter: 2012Q1

REPORT INFORMATION
  Report Type: 
  Country: None (occurrence: None)
  Receive Date: 20120206
  Receipt Date: 20120123
  Transmission Date: 20120608
  Serious: Yes (Hospitalization)
  Sender: FDA-Public Use
  Company Number: ES-SANOFI-AVENTIS-2012SA005272

PATIENT
  Age: 60 Year
  Sex: Male

DRUGS (6)
  1. EPROSARTAN MESYLATE [Concomitant]
  2. ASPIRIN [Concomitant]
  3. SERTRALINE HYDROCHLORIDE [Concomitant]
  4. ZYPREXA [Concomitant]
  5. RIFAMPIN AND ISONIAZID [Suspect]
     Indication: TUBERCULIN TEST POSITIVE
     Route: 065
     Dates: start: 20091114, end: 20091127
  6. LORAZEPAM [Concomitant]

REACTIONS (4)
  - HYPERSENSITIVITY [None]
  - ERYTHEMA [None]
  - PRURITUS GENERALISED [None]
  - EYELID OEDEMA [None]
